FAERS Safety Report 13901593 (Version 2)
Quarter: 2017Q3

REPORT INFORMATION
  Report Type: Report from Study
  Country: BR (occurrence: BR)
  Receive Date: 20170824
  Receipt Date: 20170908
  Transmission Date: 20171127
  Serious: Yes (Disabling)
  Sender: FDA-Public Use
  Company Number: PHHY2017BR123029

PATIENT
  Sex: Female
  Weight: 79 kg

DRUGS (1)
  1. GILENYA [Suspect]
     Active Substance: FINGOLIMOD HYDROCHLORIDE
     Indication: MULTIPLE SCLEROSIS
     Dosage: 0.5 MG, QD
     Route: 048
     Dates: start: 201508, end: 201707

REACTIONS (4)
  - Multiple sclerosis relapse [Recovering/Resolving]
  - Gait disturbance [Not Recovered/Not Resolved]
  - Therapeutic response decreased [Unknown]
  - Muscular weakness [Unknown]
